FAERS Safety Report 6194452-7 (Version None)
Quarter: 2009Q2

REPORT INFORMATION
  Report Type: 
  Country: None (occurrence: None)
  Receive Date: 20090519
  Receipt Date: 20080619
  Transmission Date: 20091009
  Serious: No
  Sender: FDA-Public Use
  Company Number: US-TYCO HEALTHCARE/MALLINCKRODT-T200801048

PATIENT

DRUGS (1)
  1. DEXTROAMPHETAMINE SULFATE EXTENDED RELEASE [Suspect]
     Dates: start: 20080601, end: 20080601

REACTIONS (3)
  - ANAPHYLACTIC SHOCK [None]
  - DRUG INEFFECTIVE [None]
  - SKIN REACTION [None]
